FAERS Safety Report 13480349 (Version 3)
Quarter: 2018Q1

REPORT INFORMATION
  Report Type: Report from Study
  Country: US (occurrence: US)
  Receive Date: 20170424
  Receipt Date: 20180117
  Transmission Date: 20180508
  Serious: No
  Sender: FDA-Public Use
  Company Number: US-AMGEN-USASL2017041314

PATIENT
  Age: 41 Year
  Sex: Male

DRUGS (2)
  1. REPATHA [Suspect]
     Active Substance: EVOLOCUMAB
     Indication: TYPE V HYPERLIPIDAEMIA
     Dosage: UNK, Q2WK
     Route: 065
  2. REPATHA [Suspect]
     Active Substance: EVOLOCUMAB
     Indication: TYPE IIA HYPERLIPIDAEMIA

REACTIONS (8)
  - Nausea [Unknown]
  - Drug dose omission [Unknown]
  - Piloerection [Unknown]
  - Fatigue [Unknown]
  - Therapeutic response shortened [Unknown]
  - Chills [Unknown]
  - Pallor [Unknown]
  - Malaise [Unknown]
